FAERS Safety Report 6612348-0 (Version None)
Quarter: 2010Q1

REPORT INFORMATION
  Report Type: 
  Country: None (occurrence: None)
  Receive Date: 20100303
  Receipt Date: 20100222
  Transmission Date: 20100710
  Serious: Yes (Hospitalization, Other)
  Sender: FDA-Public Use
  Company Number: US-SANOFI-AVENTIS-2010SA001354

PATIENT
  Age: 46 Year
  Sex: Male

DRUGS (15)
  1. PLAVIX [Suspect]
     Indication: DRUG USE FOR UNKNOWN INDICATION
     Route: 048
     Dates: end: 20091101
  2. ASPIRIN [Concomitant]
     Route: 065
  3. PRILOSEC [Concomitant]
     Route: 065
  4. OXYCODONE HCL [Concomitant]
     Route: 065
  5. LORTAB [Concomitant]
     Indication: BREAKTHROUGH PAIN
     Dosage: 7.5/500 2 TIMES
     Route: 065
  6. PLATELET AGGREGATION INHIBITORS [Concomitant]
     Route: 065
  7. CRESTOR [Concomitant]
     Route: 065
  8. DILTIAZEM/HYDROCHLOROTHIAZIDE [Concomitant]
     Route: 065
  9. FOLIC ACID [Concomitant]
     Route: 065
  10. LISINOPRIL [Concomitant]
     Route: 065
  11. IMDUR [Concomitant]
     Route: 065
  12. METOPROLOL TARTRATE [Concomitant]
     Route: 065
  13. DOXAZOSIN MESYLATE [Concomitant]
     Route: 065
  14. VALIUM [Concomitant]
     Dosage: 3 TIMES AS NECESSARY
     Route: 065
  15. NITROGLYCERIN [Concomitant]
     Route: 060

REACTIONS (8)
  - AMYLOIDOSIS [None]
  - BLOOD URINE PRESENT [None]
  - COLITIS ISCHAEMIC [None]
  - DRUG INEFFECTIVE [None]
  - DYSURIA [None]
  - INTERVERTEBRAL DISC PROTRUSION [None]
  - MYOCARDIAL INFARCTION [None]
  - PAIN [None]
